FAERS Safety Report 17247379 (Version 1)
Quarter: 2020Q1

REPORT INFORMATION
  Report Type: Spontaneous
  Country: FR (occurrence: FR)
  Receive Date: 20200108
  Receipt Date: 20200108
  Transmission Date: 20200409
  Serious: Yes (Death, Life-Threatening, Disabling)
  Sender: FDA-Public Use
  Company Number: FR-MYLANLABS-2020M1002091

PATIENT
  Age: 59 Year
  Sex: Female

DRUGS (2)
  1. IMATINIB. [Suspect]
     Active Substance: IMATINIB MESYLATE
     Indication: ABDOMINAL COMPARTMENT SYNDROME
  2. IMATINIB. [Suspect]
     Active Substance: IMATINIB MESYLATE
     Indication: GASTROINTESTINAL STROMAL TUMOUR
     Dosage: 800 MILLIGRAM, QD (BY NASO-GASTRIC TUBE, MAR-2017 400MG/D PER OS, NOV-2017 INCREASED TO 800 MG/D)
     Dates: start: 201701

REACTIONS (4)
  - Therapy responder [Recovered/Resolved]
  - Drug ineffective [Not Recovered/Not Resolved]
  - Condition aggravated [Fatal]
  - Off label use [Recovered/Resolved with Sequelae]
